FAERS Safety Report 6476190-6 (Version None)
Quarter: 2009Q4

REPORT INFORMATION
  Report Type: 
  Country: None (occurrence: None)
  Receive Date: 20091206
  Receipt Date: 20090424
  Transmission Date: 20100525
  Serious: No
  Sender: FDA-Public Use
  Company Number: US-ALLERGAN-0905709US

PATIENT
  Age: 62 Year
  Sex: Female

DRUGS (3)
  1. ELESTAT [Suspect]
     Indication: CONJUNCTIVITIS ALLERGIC
     Dosage: UNK, UNK
     Route: 047
     Dates: start: 20090424
  2. CELEBREX [Concomitant]
     Indication: DRUG USE FOR UNKNOWN INDICATION
     Dosage: 200 MG, QD
     Route: 048
  3. DIAZEPAM [Concomitant]
     Indication: DRUG USE FOR UNKNOWN INDICATION
     Dosage: 5 MG, QD
     Route: 048

REACTIONS (2)
  - EYE PRURITUS [None]
  - OCULAR HYPERAEMIA [None]
